FAERS Safety Report 13762134 (Version 1)
Quarter: 2017Q3

REPORT INFORMATION
  Report Type: Spontaneous
  Country: US (occurrence: US)
  Receive Date: 20170717
  Receipt Date: 20170717
  Transmission Date: 20171127
  Serious: No
  Sender: FDA-Public Use
  Company Number: None

PATIENT
  Age: 60 Year
  Sex: Female
  Weight: 57.6 kg

DRUGS (1)
  1. PACLITAXEL 6MG/ML [Suspect]
     Active Substance: PACLITAXEL
     Indication: OVARIAN CANCER
     Dosage: 80MG/M2 - 139MG ONCE IV
     Route: 042
     Dates: start: 20170629

REACTIONS (2)
  - Feeling hot [None]
  - Flushing [None]

NARRATIVE: CASE EVENT DATE: 20170629
